FAERS Safety Report 7116269-9 (Version None)
Quarter: 2010Q4

REPORT INFORMATION
  Report Type: 
  Country: None (occurrence: None)
  Receive Date: 20101115
  Receipt Date: 20101103
  Transmission Date: 20110411
  Serious: Yes (Hospitalization)
  Sender: FDA-Public Use
  Company Number: JPI-P-012907

PATIENT
  Age: 48 Year
  Sex: Female
  Weight: 90.7194 kg

DRUGS (9)
  1. XYREM [Suspect]
     Indication: NARCOLEPSY
     Dosage: (,2 IN 1 D),ORAL,  6 GM (3 GM, 2 IN 1 D),ORAL
     Route: 048
     Dates: start: 20100901, end: 20100101
  2. XYREM [Suspect]
     Indication: NARCOLEPSY
     Dosage: (,2 IN 1 D),ORAL,  6 GM (3 GM, 2 IN 1 D),ORAL
     Route: 048
     Dates: start: 20100101, end: 20101030
  3. UNSPECIFIED DIABETES MEDICATION [Concomitant]
  4. UNSPECIFIED HIGH BLOOD PRESSURE MEDICATION [Concomitant]
  5. UNSPECIFIED HIGH CHOLESTEROL MEDICATION [Concomitant]
  6. UNSPECIFIED ASTHMA MEDICATION [Concomitant]
  7. UNSPECIFIED COPD MEDICATION [Concomitant]
  8. UNSPECIFIED NEUROPATHY AND MUSCLE SPASM MEDICATION [Concomitant]
  9. OMEPRAZOLE [Concomitant]

REACTIONS (1)
  - CHEST PAIN [None]
